FAERS Safety Report 7748006-9 (Version None)
Quarter: 2011Q3

REPORT INFORMATION
  Report Type: 
  Country: None (occurrence: None)
  Receive Date: 20110913
  Receipt Date: 20110617
  Transmission Date: 20111222
  Serious: No
  Sender: FDA-Public Use
  Company Number: US-ALLERGAN-1108207US

PATIENT
  Age: 47 Year
  Sex: Female

DRUGS (1)
  1. LATISSE [Suspect]
     Indication: GROWTH OF EYELASHES
     Dosage: 1 DROP APPLIED TOPICALLY TO THE UPPER LID EYELASHES USING ONE APPLICATOR PER EYE
     Route: 061

REACTIONS (1)
  - EYE INFECTION BACTERIAL [None]
